FAERS Safety Report 10186379 (Version 1)
Quarter: 2014Q2

REPORT INFORMATION
  Report Type: Spontaneous
  Country: US (occurrence: US)
  Receive Date: 20140521
  Receipt Date: 20140521
  Transmission Date: 20141212
  Serious: No
  Sender: FDA-Public Use
  Company Number: US-ASTRAZENECA-2013SE61378

PATIENT
  Age: 76 Year
  Sex: Female
  Weight: 92.1 kg

DRUGS (2)
  1. PULMICORT FLEXHALER [Suspect]
     Indication: ASTHMA
     Dosage: 180 MCG, 1 PUFFS EVERY TWELVE HOURS
     Route: 055
     Dates: start: 2013
  2. BLOOD PRESSURE MEDICINE [Concomitant]
     Indication: HYPERTENSION

REACTIONS (3)
  - Dyspnoea [Unknown]
  - Malaise [Unknown]
  - Asthma [Unknown]
